FAERS Safety Report 4764579-2 (Version None)
Quarter: 2005Q3

REPORT INFORMATION
  Report Type: 
  Country: None (occurrence: None)
  Receive Date: 20050906
  Receipt Date: 20050822
  Transmission Date: 20060218
  Serious: Yes (Disabling, Other)
  Sender: FDA-Public Use
  Company Number: 23484

PATIENT
  Age: 44 Year
  Sex: Female

DRUGS (17)
  1. NIASPAN [Suspect]
     Indication: BLOOD CHOLESTEROL INCREASED
     Dosage: 2000 MG QHS PO
     Route: 048
     Dates: end: 20040712
  2. VERAPAMIL [Suspect]
     Indication: HYPERTENSION
     Dosage: 120 MG QD PO
     Route: 048
     Dates: end: 20040712
  3. LIPITOR [Suspect]
     Indication: BLOOD CHOLESTEROL INCREASED
     Dosage: 40 MG QD PO
     Route: 048
     Dates: end: 20040712
  4. WELCHOL [Concomitant]
  5. TOPROL-XL [Concomitant]
  6. ZETIA  /USA/ [Concomitant]
  7. PLAVIX [Concomitant]
  8. INDOCIN [Concomitant]
  9. FISH OIL [Concomitant]
  10. PREVACID [Concomitant]
  11. TRAZODONE [Concomitant]
  12. LEXAPRO  /USA/ [Concomitant]
  13. TYLENOL W/ CODEINE NO. 3 [Concomitant]
  14. HYDROMORPHONE [Concomitant]
  15. IRON [Concomitant]
  16. CALTRATE [Concomitant]
  17. TYLENOL PM [Concomitant]

REACTIONS (2)
  - ACTIVITIES OF DAILY LIVING IMPAIRED [None]
  - RHABDOMYOLYSIS [None]
